FAERS Safety Report 17882548 (Version 1)
Quarter: 2020Q2

REPORT INFORMATION
  Report Type: Spontaneous
  Country: AR (occurrence: AR)
  Receive Date: 20200610
  Receipt Date: 20200610
  Transmission Date: 20200714
  Serious: Yes (Other)
  Sender: FDA-Public Use
  Company Number: AR-009507513-2005ARG002002

PATIENT
  Age: 76 Year
  Sex: Male

DRUGS (1)
  1. JANUMET XR [Suspect]
     Active Substance: METFORMIN HYDROCHLORIDE\SITAGLIPTIN PHOSPHATE
     Indication: TYPE 2 DIABETES MELLITUS
     Dosage: UNK
     Route: 048

REACTIONS (7)
  - Blood glucose decreased [Unknown]
  - Urticaria [Recovering/Resolving]
  - Mental disorder [Unknown]
  - Sleep disorder [Not Recovered/Not Resolved]
  - Pruritus [Recovering/Resolving]
  - Scratch [Not Recovered/Not Resolved]
  - Polyneuropathy [Unknown]

NARRATIVE: CASE EVENT DATE: 2020
